FAERS Safety Report 5508097-2 (Version None)
Quarter: 2007Q4

REPORT INFORMATION
  Report Type: 
  Country: None (occurrence: None)
  Receive Date: 20071031
  Receipt Date: 20070713
  Transmission Date: 20080405
  Serious: No
  Sender: FDA-Public Use
  Company Number: 200610409BWH

PATIENT
  Age: 45 Year
  Sex: Female

DRUGS (10)
  1. SORAFENIB [Suspect]
     Indication: METASTATIC RENAL CELL CARCINOMA
     Dosage: 400 MG, BID, ORAL;  400 MG, BID, ORAL;  400 MG, QD, ORAL
     Route: 048
     Dates: start: 20050701
  2. SORAFENIB [Suspect]
     Indication: METASTATIC RENAL CELL CARCINOMA
     Dosage: 400 MG, BID, ORAL;  400 MG, BID, ORAL;  400 MG, QD, ORAL
     Route: 048
     Dates: start: 20050701
  3. SORAFENIB [Suspect]
     Indication: METASTATIC RENAL CELL CARCINOMA
     Dosage: 400 MG, BID, ORAL;  400 MG, BID, ORAL;  400 MG, QD, ORAL
     Route: 048
     Dates: start: 20050701
  4. NORVASC [Concomitant]
  5. FUROSEMIDE [Concomitant]
  6. UNKNOWN THYROID MEDICATION [Concomitant]
  7. ZOLOFT [Concomitant]
  8. POTASSIUM CHLORIDE [Concomitant]
  9. ACIPHEX [Concomitant]
  10. STOOL SOFTENER [Concomitant]

REACTIONS (5)
  - ALOPECIA [None]
  - DRY SKIN [None]
  - HYPERKERATOSIS [None]
  - KIDNEY INFECTION [None]
  - PRURITUS [None]
